FAERS Safety Report 7917623-5 (Version None)
Quarter: 2011Q4

REPORT INFORMATION
  Report Type: 
  Country: None (occurrence: None)
  Receive Date: 20111116
  Receipt Date: 20111104
  Transmission Date: 20120403
  Serious: Yes (Hospitalization)
  Sender: FDA-Public Use
  Company Number: US-ELI_LILLY_AND_COMPANY-US201111003647

PATIENT
  Age: 34 Year
  Sex: Female

DRUGS (1)
  1. CYMBALTA [Suspect]
     Indication: FIBROMYALGIA
     Dosage: 60 MG, QD

REACTIONS (5)
  - INTERVERTEBRAL DISC OPERATION [None]
  - ANGER [None]
  - ECONOMIC PROBLEM [None]
  - INSOMNIA [None]
  - CRYING [None]
